FAERS Safety Report 8604143-8 (Version None)
Quarter: 2012Q3

REPORT INFORMATION
  Report Type: 
  Country: None (occurrence: None)
  Receive Date: 20120806
  Receipt Date: 20120727
  Transmission Date: 20120928
  Serious: Yes (Death, Hospitalization)
  Sender: FDA-Public Use
  Company Number: 2012070137

PATIENT
  Age: 24 Year
  Sex: Male

DRUGS (5)
  1. CYCLOSPORINE [Concomitant]
  2. MESALAMINE [Suspect]
     Indication: COLITIS ULCERATIVE
     Dosage: 4G/D (4 GM,1 IN 1 D),ORAL
     Route: 048
     Dates: start: 20070101
  3. METHYLPREDNISOLONE [Concomitant]
  4. PREDNISONE TAB [Concomitant]
  5. SULFASALAZINE [Concomitant]

REACTIONS (14)
  - MOYAMOYA DISEASE [None]
  - CEREBROVASCULAR DISORDER [None]
  - GAIT DISTURBANCE [None]
  - PUPILS UNEQUAL [None]
  - DIARRHOEA HAEMORRHAGIC [None]
  - NEPHROTIC SYNDROME [None]
  - VISION BLURRED [None]
  - EXTENSOR PLANTAR RESPONSE [None]
  - FACE OEDEMA [None]
  - OEDEMA PERIPHERAL [None]
  - MUSCULAR WEAKNESS [None]
  - DIZZINESS [None]
  - HYPERREFLEXIA [None]
  - NUCLEAR MAGNETIC RESONANCE IMAGING BRAIN ABNORMAL [None]
